FAERS Safety Report 6926122-9 (Version None)
Quarter: 2010Q3

REPORT INFORMATION
  Report Type: 
  Country: None (occurrence: None)
  Receive Date: 20100816
  Receipt Date: 20100812
  Transmission Date: 20110219
  Serious: Yes (Hospitalization)
  Sender: FDA-Public Use
  Company Number: CH-BRISTOL-MYERS SQUIBB COMPANY-15237548

PATIENT
  Age: 32 Year
  Sex: Female

DRUGS (8)
  1. ABILIFY [Suspect]
     Indication: SCHIZOPHRENIA
  2. FLUOXETINE [Suspect]
  3. TRANXILIUM [Suspect]
  4. CLEXANE [Concomitant]
  5. DAFLON [Concomitant]
  6. PENICILLIN V [Concomitant]
  7. CEFUROXIME AXETIL [Concomitant]
  8. LEVOTHYROXINE SODIUM [Concomitant]
     Indication: HYPOTHYROIDISM

REACTIONS (3)
  - LIVE BIRTH [None]
  - PREGNANCY [None]
  - PREMATURE RUPTURE OF MEMBRANES [None]
